FAERS Safety Report 16027851 (Version 1)
Quarter: 2019Q1

REPORT INFORMATION
  Report Type: Spontaneous
  Country: US (occurrence: US)
  Receive Date: 20190304
  Receipt Date: 20190304
  Transmission Date: 20190418
  Serious: No
  Sender: FDA-Public Use
  Company Number: US-IMPAX LABORATORIES, LLC-2018-IPXL-00961

PATIENT
  Age: 89 Year
  Sex: Male
  Weight: 66 kg

DRUGS (3)
  1. RYTARY [Suspect]
     Active Substance: CARBIDOPA\LEVODOPA
     Dosage: 48.75/195MG, AND OTHER STRENGTH CAPSULE (UNSPECIFIED), UNK
     Route: 048
  2. RYTARY [Suspect]
     Active Substance: CARBIDOPA\LEVODOPA
     Dosage: 23.75/95 MG ONE CAPSULE THREE TIMES DAILY AND 61.25/245 MG, ONE CAPSULE THREE TIMES DAILY
     Route: 048
     Dates: start: 201801
  3. RYTARY [Suspect]
     Active Substance: CARBIDOPA\LEVODOPA
     Indication: PARKINSON^S DISEASE
     Dosage: 61.25/245 MG, ONE CAPSULE THREE TIMES DAILY
     Route: 048
     Dates: start: 20180103, end: 201801

REACTIONS (1)
  - Dyspnoea [Recovering/Resolving]

NARRATIVE: CASE EVENT DATE: 201803
